FAERS Safety Report 14480249 (Version 1)
Quarter: 2018Q1

REPORT INFORMATION
  Report Type: Spontaneous
  Country: FR (occurrence: FR)
  Receive Date: 20180202
  Receipt Date: 20180202
  Transmission Date: 20180509
  Serious: Yes (Hospitalization)
  Sender: FDA-Public Use
  Company Number: FR-TEVA-2018-FR-851977

PATIENT
  Age: 1 Year
  Sex: Female
  Weight: 8.5 kg

DRUGS (5)
  1. PROGLYCEM [Suspect]
     Active Substance: DIAZOXIDE
     Dosage: CURRENT DOSAGE: 35 MG PER 8HOURS
     Route: 065
     Dates: start: 20170203
  2. L-THYROXINE 150 MCG/ML [Concomitant]
     Dosage: 4 DOSAGE FORMS DAILY; 4 DROPS IN THE MORNING SINCE THE BIRTH
  3. INEXIUM [Concomitant]
     Active Substance: ESOMEPRAZOLE
     Dosage: 7 MILLIGRAM DAILY; 7 MG IN THE EVENING
     Dates: start: 201703
  4. GLUTAFORM [Concomitant]
  5. ADRIGYL [Concomitant]
     Dosage: 3 DOSAGE FORMS DAILY; 3 DROPS IN THE MORNING SINCE THE BIRTH

REACTIONS (3)
  - Pericardial effusion [Not Recovered/Not Resolved]
  - Pericarditis [Not Recovered/Not Resolved]
  - Cardiac failure [Not Recovered/Not Resolved]

NARRATIVE: CASE EVENT DATE: 20180105
